FAERS Safety Report 6574428-8 (Version None)
Quarter: 2010Q1

REPORT INFORMATION
  Report Type: 
  Country: None (occurrence: None)
  Receive Date: 20100209
  Receipt Date: 20100203
  Transmission Date: 20100710
  Serious: Yes (Other)
  Sender: FDA-Public Use
  Company Number: US-RB-002270-10

PATIENT
  Age: 47 Year
  Sex: Female

DRUGS (1)
  1. MUCINEX DM [Suspect]
     Dosage: TOOK ONE TABLET EVERY 12 HOURS FOR ONE DAY
     Route: 048
     Dates: start: 20100130

REACTIONS (7)
  - DIARRHOEA [None]
  - DIZZINESS [None]
  - EPISTAXIS [None]
  - HAEMOPTYSIS [None]
  - HEADACHE [None]
  - MOUTH HAEMORRHAGE [None]
  - VOMITING [None]
